FAERS Safety Report 15482940 (Version 5)
Quarter: 2020Q1

REPORT INFORMATION
  Report Type: Spontaneous
  Country: US (occurrence: US)
  Receive Date: 20181010
  Receipt Date: 20200316
  Transmission Date: 20200409
  Serious: Yes (Other)
  Sender: FDA-Public Use
  Company Number: US-PFIZER INC-2018409070

PATIENT
  Age: 65 Year
  Sex: Male
  Weight: 77.56 kg

DRUGS (1)
  1. XELJANZ XR [Suspect]
     Active Substance: TOFACITINIB CITRATE
     Indication: RHEUMATOID ARTHRITIS
     Dosage: 11 MG, DAILY
     Route: 048

REACTIONS (7)
  - Gait disturbance [Unknown]
  - Blood glucose increased [Unknown]
  - Nasopharyngitis [Unknown]
  - General physical health deterioration [Unknown]
  - Bursa disorder [Unknown]
  - Pain [Unknown]
  - Nerve injury [Unknown]
